FAERS Safety Report 7824041-7 (Version None)
Quarter: 2011Q4

REPORT INFORMATION
  Report Type: 
  Country: None (occurrence: None)
  Receive Date: 20111019
  Receipt Date: 20111010
  Transmission Date: 20120403
  Serious: Yes (Other)
  Sender: FDA-Public Use
  Company Number: PHFR2011GB03251

PATIENT
  Sex: Female

DRUGS (8)
  1. AMOROLFINE [Concomitant]
     Dosage: UNK
     Dates: start: 20110321
  2. CLOZARIL [Suspect]
     Indication: SCHIZOAFFECTIVE DISORDER
     Dosage: 62.5 MG, QD
     Route: 048
  3. CLOZARIL [Suspect]
     Dosage: UNK
     Route: 048
     Dates: end: 20110809
  4. CAVILON [Concomitant]
     Route: 061
  5. CLOZARIL [Suspect]
     Indication: SCHIZOPHRENIA
     Dosage: 12.5 MG, QMO
     Route: 048
     Dates: start: 20110209
  6. CITALOPRAM [Concomitant]
     Dosage: 20 MG, QD
     Route: 048
  7. LANSOPRAZOLE [Concomitant]
     Dosage: 30 MG, QD
     Route: 048
     Dates: start: 20110217
  8. FORTISIP [Concomitant]
     Route: 048

REACTIONS (7)
  - INCONTINENCE [None]
  - TACHYCARDIA [None]
  - HYPERTENSION [None]
  - FLUSHING [None]
  - NEUROLEPTIC MALIGNANT SYNDROME [None]
  - CARDIAC DISORDER [None]
  - MUSCLE RIGIDITY [None]
